FAERS Safety Report 4551513-3 (Version None)
Quarter: 2005Q1

REPORT INFORMATION
  Report Type: 
  Country: None (occurrence: None)
  Receive Date: 20050110
  Receipt Date: 20040520
  Transmission Date: 20050727
  Serious: Yes (Other)
  Sender: FDA-Public Use
  Company Number: 2004-05-2559

PATIENT
  Age: 51 Year
  Sex: Male

DRUGS (8)
  1. CORRECTOL [Suspect]
     Indication: CONSTIPATION
     Dosage: TWO QD ORAL
     Route: 048
     Dates: start: 19900701, end: 19930601
  2. SENOKOT [Suspect]
     Indication: CONSTIPATION
     Dosage: TWICE QD ORAL
     Route: 048
     Dates: start: 19850101, end: 19860601
  3. FLEET PHOSPHO-SODA ORALS [Suspect]
     Indication: CONSTIPATION
     Dosage: TWICE QD ORAL
     Route: 048
     Dates: start: 19860701, end: 19871001
  4. DULCOLAX [Suspect]
     Indication: CONSTIPATION
     Dosage: TWICE QD ORAL
     Route: 048
     Dates: start: 19871001, end: 19881201
  5. EX-LAX TABLETS [Suspect]
     Indication: CONSTIPATION
     Dosage: TWICE QD ORAL
     Route: 048
     Dates: start: 19881201, end: 19900601
  6. CARTERS PILLETSJES TABLETS [Suspect]
     Indication: CONSTIPATION
     Dosage: TWICE QD ORAL
     Route: 048
     Dates: start: 19930601, end: 19951001
  7. PERI-COLACE TABLETS [Suspect]
     Indication: CONSTIPATION
     Dosage: TWICE QD ORAL
     Route: 048
     Dates: start: 19950201, end: 19980401
  8. COLACE TABLETS [Suspect]
     Indication: CONSTIPATION
     Dosage: TWICE QD ORAL
     Route: 048
     Dates: start: 19980501, end: 20010101

REACTIONS (2)
  - INTESTINAL OBSTRUCTION [None]
  - LAXATIVE ABUSE [None]
